FAERS Safety Report 19246725 (Version 12)
Quarter: 2022Q2

REPORT INFORMATION
  Report Type: Report from Study
  Country: FR (occurrence: None)
  Receive Date: 20210512
  Receipt Date: 20220509
  Transmission Date: 20220721
  Serious: Yes (Hospitalization)
  Sender: FDA-Public Use
  Company Number: FR-EISAI MEDICAL RESEARCH-EC-2021-092462

PATIENT
  Age: 75 Year
  Sex: Male
  Weight: 70 kg

DRUGS (11)
  1. LENVATINIB [Suspect]
     Active Substance: LENVATINIB
     Indication: Malignant melanoma
     Dosage: STARTING DOSE AT 20 MG, FLUCTUATING DOSAGE
     Route: 048
     Dates: start: 20200911, end: 20210428
  2. LENVATINIB [Suspect]
     Active Substance: LENVATINIB
     Route: 048
     Dates: start: 20210429, end: 20210429
  3. PEMBROLIZUMAB [Suspect]
     Active Substance: PEMBROLIZUMAB
     Indication: Malignant melanoma
     Route: 041
     Dates: start: 20200911, end: 20201204
  4. PEMBROLIZUMAB [Suspect]
     Active Substance: PEMBROLIZUMAB
     Route: 041
     Dates: start: 20210115, end: 20210115
  5. QUAVONLIMAB [Suspect]
     Active Substance: QUAVONLIMAB
     Indication: Malignant melanoma
     Route: 042
     Dates: start: 20200911, end: 20201204
  6. QUAVONLIMAB [Suspect]
     Active Substance: QUAVONLIMAB
     Route: 042
     Dates: start: 20210115, end: 20210115
  7. IRBESARTAN [Concomitant]
     Active Substance: IRBESARTAN
     Dates: start: 201701
  8. AMLODIPINE BESYLATE [Concomitant]
     Active Substance: AMLODIPINE BESYLATE
     Dates: start: 20201009
  9. TRAMADOL HYDROCHLORIDE [Concomitant]
     Active Substance: TRAMADOL HYDROCHLORIDE
     Dates: start: 20210115
  10. PREDNISONE [Concomitant]
     Active Substance: PREDNISONE
     Dates: start: 20210430, end: 20210530
  11. FOLIC ACID [Concomitant]
     Active Substance: FOLIC ACID
     Dates: start: 20210312

REACTIONS (1)
  - Thrombocytopenia [Recovered/Resolved]

NARRATIVE: CASE EVENT DATE: 20210505
